FAERS Safety Report 7979164-9 (Version None)
Quarter: 2011Q4

REPORT INFORMATION
  Report Type: 
  Country: None (occurrence: None)
  Receive Date: 20111214
  Receipt Date: 20111201
  Transmission Date: 20120403
  Serious: Yes (Hospitalization)
  Sender: FDA-Public Use
  Company Number: US-CELGENEUS-163-21880-11120371

PATIENT
  Age: 57 Year
  Sex: Male
  Weight: 87.168 kg

DRUGS (6)
  1. REVLIMID [Suspect]
     Dosage: 10 MILLIGRAM
     Route: 048
     Dates: start: 20091208, end: 20100621
  2. ALDARA [Concomitant]
     Dosage: 5 PERCENT
     Route: 065
  3. ASPIRIN [Concomitant]
     Dosage: 325 MILLIGRAM
     Route: 065
  4. BACTRIM DS [Concomitant]
     Dosage: 160-800MG
     Route: 048
  5. ACYCLOVIR [Concomitant]
     Dosage: 40 MILLIGRAM
     Route: 065
  6. VIAGRA [Concomitant]
     Dosage: 100 MILLIGRAM
     Route: 065

REACTIONS (1)
  - TRANSITIONAL CELL CARCINOMA [None]
